FAERS Safety Report 14790915 (Version 1)
Quarter: 2018Q2

REPORT INFORMATION
  Report Type: Spontaneous
  Country: US (occurrence: US)
  Receive Date: 20180413
  Receipt Date: 20180413
  Transmission Date: 20180711
  Serious: No
  Sender: FDA-Public Use
  Company Number: None

PATIENT
  Sex: Male

DRUGS (1)
  1. COSENTYX [Suspect]
     Active Substance: SECUKINUMAB
     Route: 058
     Dates: start: 20180312

REACTIONS (6)
  - Confusional state [None]
  - Irritability [None]
  - Agitation [None]
  - Abdominal discomfort [None]
  - Aphasia [None]
  - Memory impairment [None]
